FAERS Safety Report 13780100 (Version 2)
Quarter: 2017Q3

REPORT INFORMATION
  Report Type: Spontaneous
  Country: US (occurrence: US)
  Receive Date: 20170724
  Receipt Date: 20170728
  Transmission Date: 20171127
  Serious: Yes (Hospitalization)
  Sender: FDA-Public Use
  Company Number: US-009507513-1707USA004981

PATIENT
  Age: 56 Year
  Sex: Female
  Weight: 56.3 kg

DRUGS (1)
  1. KEYTRUDA [Suspect]
     Active Substance: PEMBROLIZUMAB
     Indication: NON-SMALL CELL LUNG CANCER
     Dosage: 200 MG, Q3W
     Route: 042
     Dates: start: 20170414, end: 20170508

REACTIONS (8)
  - Diarrhoea [Unknown]
  - Chills [Unknown]
  - Nausea [Unknown]
  - Pyrexia [Unknown]
  - Abdominal pain [Unknown]
  - Dehydration [Unknown]
  - Urinary incontinence [Unknown]
  - Vomiting [Unknown]

NARRATIVE: CASE EVENT DATE: 20170515
